FAERS Safety Report 13655013 (Version 1)
Quarter: 2017Q2

REPORT INFORMATION
  Report Type: Spontaneous
  Country: SI (occurrence: SI)
  Receive Date: 20170615
  Receipt Date: 20170615
  Transmission Date: 20170830
  Serious: Yes (Other)
  Sender: FDA-Public Use
  Company Number: SI-BAYER-2017-111911

PATIENT
  Sex: Male

DRUGS (1)
  1. BETAFERON [Suspect]
     Active Substance: INTERFERON BETA-1B
     Indication: MULTIPLE SCLEROSIS
     Dosage: UNK
     Dates: start: 199707

REACTIONS (9)
  - Gamma-glutamyltransferase increased [None]
  - Atrophy [None]
  - Fatigue [None]
  - Multiple sclerosis relapse [Recovering/Resolving]
  - Respiratory tract infection [None]
  - Cognitive disorder [None]
  - Adjustment disorder with depressed mood [None]
  - Hemiparesis [Recovering/Resolving]
  - Disturbance in attention [None]

NARRATIVE: CASE EVENT DATE: 2000
